FAERS Safety Report 5071928-7 (Version None)
Quarter: 2006Q3

REPORT INFORMATION
  Report Type: 
  Country: None (occurrence: None)
  Receive Date: 20060804
  Receipt Date: 20060727
  Transmission Date: 20061208
  Serious: Yes (Hospitalization)
  Sender: FDA-Public Use
  Company Number: FR-ABBOTT-06P-056-0339132-00

PATIENT
  Sex: Female
  Weight: 57 kg

DRUGS (4)
  1. HUMIRA [Suspect]
     Indication: RHEUMATOID ARTHRITIS
     Route: 058
     Dates: start: 20050119
  2. HUMIRA [Suspect]
     Indication: CROHN'S DISEASE
  3. REMICADE [Concomitant]
     Indication: CROHN'S DISEASE
     Route: 050
     Dates: start: 20020101, end: 20041101
  4. REMICADE [Concomitant]
     Indication: RHEUMATOID ARTHRITIS

REACTIONS (11)
  - CANDIDIASIS [None]
  - GENITAL LESION [None]
  - INJECTION SITE PRURITUS [None]
  - INJECTION SITE REACTION [None]
  - PAIN [None]
  - PRURITUS [None]
  - PSORIASIS [None]
  - RASH [None]
  - RASH PRURITIC [None]
  - SUPERINFECTION [None]
  - TOXIC SKIN ERUPTION [None]
